FAERS Safety Report 8565770-X (Version None)
Quarter: 2012Q3

REPORT INFORMATION
  Report Type: 
  Country: None (occurrence: None)
  Receive Date: 20120803
  Receipt Date: 20111215
  Transmission Date: 20120928
  Serious: No
  Sender: FDA-Public Use
  Company Number: US-ABBOTT-11P-163-0883356-00

PATIENT
  Sex: Male

DRUGS (4)
  1. NIASPAN [Suspect]
     Dosage: 500 MG - WITH EVENING MEAL
     Route: 048
  2. NIASPAN [Suspect]
     Dosage: WITH EVENING MEAL OVER 4 WEEK PERIOD
     Route: 048
  3. NIASPAN [Suspect]
     Indication: PRODUCT USED FOR UNKNOWN INDICATION
     Dosage: WITH EVENING MEAL
     Route: 048
  4. NIASPAN [Suspect]
     Dosage: 250 MG - WITH EVENING MEAL
     Route: 048

REACTIONS (3)
  - PRURITUS [None]
  - FLUSHING [None]
  - ERYTHEMA [None]
